FAERS Safety Report 13725288 (Version 1)
Quarter: 2017Q3

REPORT INFORMATION
  Report Type: Spontaneous
  Country: FR (occurrence: FR)
  Receive Date: 20170707
  Receipt Date: 20170707
  Transmission Date: 20171127
  Serious: Yes (Other)
  Sender: FDA-Public Use
  Company Number: FR-BAYER-2017-128321

PATIENT
  Age: 42 Year
  Sex: Female

DRUGS (1)
  1. MIRENA [Suspect]
     Active Substance: LEVONORGESTREL
     Indication: CONTRACEPTION
     Dosage: 20 MCG/24HR, CONT
     Route: 015
     Dates: start: 201301, end: 201505

REACTIONS (14)
  - Fatigue [Recovered/Resolved]
  - Depression [Recovered/Resolved]
  - Arthralgia [Recovered/Resolved]
  - Metrorrhagia [Recovered/Resolved]
  - Iron deficiency anaemia [Recovered/Resolved]
  - Alopecia [Recovered/Resolved]
  - Breast cyst [Unknown]
  - Loss of libido [Recovered/Resolved]
  - Amnesia [Recovered/Resolved]
  - Migraine [Recovered/Resolved]
  - Anxiety [Recovered/Resolved]
  - Abdominal pain upper [Recovered/Resolved]
  - Peripheral swelling [Recovered/Resolved]
  - Poor dental condition [Recovered/Resolved]

NARRATIVE: CASE EVENT DATE: 201304
